FAERS Safety Report 7461666-5 (Version None)
Quarter: 2011Q2

REPORT INFORMATION
  Report Type: 
  Country: None (occurrence: None)
  Receive Date: 20110506
  Receipt Date: 20110425
  Transmission Date: 20111010
  Serious: Yes (Hospitalization, Other)
  Sender: FDA-Public Use
  Company Number: US-ELI_LILLY_AND_COMPANY-US201104007853

PATIENT
  Age: 93 Year
  Sex: Male

DRUGS (3)
  1. ACETAMINOPHEN [Concomitant]
     Dosage: UNK, UNKNOWN
  2. DULOXETINE HYDROCHLORIDE [Suspect]
     Indication: MAJOR DEPRESSION
     Dosage: UNK, UNKNOWN
  3. MEMANTINE [Concomitant]
     Indication: DEMENTIA

REACTIONS (9)
  - HEPATIC FAILURE [None]
  - DEHYDRATION [None]
  - NAUSEA [None]
  - ACUTE PRERENAL FAILURE [None]
  - VOMITING [None]
  - RENAL FAILURE ACUTE [None]
  - RENAL TUBULAR NECROSIS [None]
  - DELIRIUM [None]
  - HYPOTENSION [None]
